FAERS Safety Report 18729758 (Version 1)
Quarter: 2021Q1

REPORT INFORMATION
  Report Type: Spontaneous
  Country: FR (occurrence: FR)
  Receive Date: 20210112
  Receipt Date: 20210112
  Transmission Date: 20210419
  Serious: Yes (Hospitalization)
  Sender: FDA-Public Use
  Company Number: FR-TEVA-2021-FR-1866932

PATIENT
  Age: 75 Year
  Sex: Female
  Weight: 57 kg

DRUGS (11)
  1. PREGABALINE [Concomitant]
     Active Substance: PREGABALIN
     Dosage: 250 MG
     Route: 048
  2. AMLODIPINE [Concomitant]
     Active Substance: AMLODIPINE BESYLATE
     Dosage: 5 MG
     Route: 048
  3. LEVOFLOXACINE [Suspect]
     Active Substance: LEVOFLOXACIN
     Indication: INTERVERTEBRAL DISCITIS
     Dosage: 500 MG
     Route: 048
     Dates: start: 20201130, end: 20201209
  4. LEVOTHYROX [Concomitant]
     Active Substance: LEVOTHYROXINE
     Dosage: 75 MICROGRAM
     Route: 048
  5. TARDYFERON [Concomitant]
     Active Substance: FERROUS SULFATE
     Dosage: 80 MBQ
  6. CLOBETASOL (PROPIONATE DE) [Concomitant]
     Route: 003
  7. CEFTRIAXONE SODIQUE [Suspect]
     Active Substance: CEFTRIAXONE SODIUM
     Indication: INTERVERTEBRAL DISCITIS
     Dosage: 1000 MG FROM 11/23/2020 TO 11/24/2020 AND 2000 MG FROM 11/25/2020 TO 12/09/2020
     Route: 042
     Dates: start: 20201123, end: 20201209
  8. LIDOCAINE (CHLORHYDRATE DE) ANHYDRE [Suspect]
     Active Substance: LIDOCAINE HYDROCHLORIDE
     Indication: BRONCHOALVEOLAR LAVAGE
     Dosage: UNKNOWN
     Route: 048
     Dates: start: 20201208
  9. MORPHINE [Concomitant]
     Active Substance: MORPHINE
     Dates: start: 20201119
  10. PANTOPRAZOLE [Concomitant]
     Active Substance: PANTOPRAZOLE
     Dosage: 20 MG
     Route: 048
  11. HYDROXYZINE (CHLORHYDRATE D^) [Suspect]
     Active Substance: HYDROXYZINE HYDROCHLORIDE
     Indication: PREMEDICATION
     Dosage: THE 25?NOV?2020 AND THE 8?DEC?2020
     Route: 048

REACTIONS (1)
  - Rash pruritic [Recovering/Resolving]

NARRATIVE: CASE EVENT DATE: 20201208
